FAERS Safety Report 7664544-1 (Version None)
Quarter: 2011Q3

REPORT INFORMATION
  Report Type: 
  Country: None (occurrence: None)
  Receive Date: 20110806
  Receipt Date: 20110103
  Transmission Date: 20111222
  Serious: No
  Sender: FDA-Public Use
  Company Number: US-ABBOTT-11P-163-0695307-00

PATIENT
  Sex: Female
  Weight: 81.72 kg

DRUGS (9)
  1. PANTOPRAZOLE [Concomitant]
     Indication: GASTROOESOPHAGEAL REFLUX DISEASE
  2. CITALOPRAM HYDROBROMIDE [Concomitant]
     Indication: DEPRESSION
  3. METOPROLOL TARTRATE [Concomitant]
     Indication: HEART RATE IRREGULAR
  4. ULTRAM [Concomitant]
     Indication: ARTHRALGIA
  5. BUPROPION HCL [Concomitant]
     Indication: DEPRESSION
  6. IBUPROFEN [Concomitant]
     Indication: PAIN
  7. FUROSEMIDE [Concomitant]
     Indication: SWELLING
  8. NIASPAN [Suspect]
     Indication: BLOOD CHOLESTEROL INCREASED
     Dosage: 500MG EVERY NIGHT
     Dates: start: 20101022, end: 20101122
  9. PRAVASTATIN [Concomitant]
     Indication: BLOOD CHOLESTEROL INCREASED

REACTIONS (1)
  - FLUSHING [None]
